FAERS Safety Report 4514574-3 (Version None)
Quarter: 2004Q4

REPORT INFORMATION
  Report Type: 
  Country: None (occurrence: None)
  Receive Date: 20041126
  Receipt Date: 20041115
  Transmission Date: 20050328
  Serious: Yes (Life-Threatening, Hospitalization)
  Sender: FDA-Public Use
  Company Number: DE-2004-035231

PATIENT
  Age: 63 Year
  Sex: Female
  Weight: 130 kg

DRUGS (1)
  1. ULTRAVIST 300 [Suspect]
     Indication: SCAN BRAIN
     Dosage: 50 ML, 1 DOSE, INTRAVENOUS
     Route: 042
     Dates: start: 20041104, end: 20041104

REACTIONS (3)
  - CONTRAST MEDIA REACTION [None]
  - RESPIRATORY ARREST [None]
  - RESPIRATORY FAILURE [None]
